FAERS Safety Report 9284527 (Version 1)
Quarter: 2013Q2

REPORT INFORMATION
  Report Type: Spontaneous
  Country: US (occurrence: US)
  Receive Date: 20130510
  Receipt Date: 20130510
  Transmission Date: 20140414
  Serious: Yes (Congenital Anomaly, Other)
  Sender: FDA-Public Use
  Company Number: US-ALLERGAN-200411384

PATIENT
  Age: 38 Year
  Sex: Female

DRUGS (1)
  1. BOTOX COSMETIC [Suspect]
     Indication: SKIN WRINKLING
     Dosage: 12UNITS, PRN
     Route: 030
     Dates: start: 20041109, end: 20041109

REACTIONS (3)
  - Abortion spontaneous [Recovered/Resolved]
  - Foetal chromosome abnormality [Unknown]
  - Pregnancy [Recovered/Resolved]
